FAERS Safety Report 9825563 (Version 1)
Quarter: 2014Q1

REPORT INFORMATION
  Report Type: Spontaneous
  Country: US (occurrence: US)
  Receive Date: 20140117
  Receipt Date: 20140117
  Transmission Date: 20141002
  Serious: Yes (Death)
  Sender: FDA-Public Use
  Company Number: US-JNJFOC-20140106091

PATIENT
  Age: 29 Year
  Sex: Male

DRUGS (5)
  1. RISPERIDONE [Suspect]
     Indication: SUICIDE ATTEMPT
     Route: 048
  2. ETHYLENE GLYCOL [Suspect]
     Indication: SUICIDE ATTEMPT
     Route: 048
  3. DOXEPIN [Suspect]
     Indication: SUICIDE ATTEMPT
     Route: 048
  4. HYDROXYZINE [Suspect]
     Indication: SUICIDE ATTEMPT
     Route: 048
  5. PAROXETINE [Suspect]
     Indication: SUICIDE ATTEMPT
     Route: 048

REACTIONS (1)
  - Toxicity to various agents [Fatal]
